FAERS Safety Report 4591658-5 (Version None)
Quarter: 2005Q1

REPORT INFORMATION
  Report Type: 
  Country: None (occurrence: None)
  Receive Date: 20050218
  Receipt Date: 20050210
  Transmission Date: 20050727
  Serious: Yes (Hospitalization, Disabling)
  Sender: FDA-Public Use
  Company Number: 2005002084

PATIENT
  Age: 35 Year
  Sex: Female
  Weight: 52 kg

DRUGS (3)
  1. GENOTROPIN [Suspect]
     Indication: HYPOPITUITARISM
     Dosage: 0.5 MG (0.5 MG, DAILY), SUBCUTANEOUS
     Route: 058
     Dates: start: 19991209, end: 20041216
  2. THIORIDAZINE HCL [Concomitant]
  3. DIGOXIN [Concomitant]

REACTIONS (12)
  - BRAIN ABSCESS [None]
  - BRAIN NEOPLASM MALIGNANT [None]
  - CARDIOMYOPATHY [None]
  - COORDINATION ABNORMAL [None]
  - DYSKINESIA [None]
  - FALL [None]
  - FATIGUE [None]
  - HAEMANGIOBLASTOMA [None]
  - HEADACHE [None]
  - HYDROCEPHALUS [None]
  - RADIATION INJURY [None]
  - VON HIPPEL-LINDAU DISEASE [None]
